FAERS Safety Report 6509197-0 (Version None)
Quarter: 2009Q4

REPORT INFORMATION
  Report Type: 
  Country: None (occurrence: None)
  Receive Date: 20091221
  Receipt Date: 20090226
  Transmission Date: 20100525
  Serious: No
  Sender: FDA-Public Use
  Company Number: US-TYCO HEALTHCARE/MALLINCKRODT-T200900599

PATIENT

DRUGS (2)
  1. ULTRA-TECHNEKOW [Suspect]
     Dosage: UNK
     Route: 013
     Dates: start: 20090226, end: 20090226
  2. TECHNETIUM 99M MAA [Suspect]
     Dosage: UNK
     Route: 013
     Dates: start: 20090226, end: 20090226

REACTIONS (1)
  - INCORRECT ROUTE OF DRUG ADMINISTRATION [None]
